FAERS Safety Report 20830294 (Version 4)
Quarter: 2025Q1

REPORT INFORMATION
  Report Type: Report from Study
  Country: CA (occurrence: CA)
  Receive Date: 20220514
  Receipt Date: 20250319
  Transmission Date: 20250409
  Serious: Yes (Other)
  Sender: NOVARTIS
  Company Number: CA-NOVARTISPH-PHHY2017CA006746

PATIENT
  Age: 41 Year
  Sex: Female

DRUGS (20)
  1. GILENYA [Suspect]
     Active Substance: FINGOLIMOD HYDROCHLORIDE
     Indication: Secondary progressive multiple sclerosis
     Route: 048
     Dates: start: 20140213
  2. GILENYA [Suspect]
     Active Substance: FINGOLIMOD HYDROCHLORIDE
     Indication: Relapsing-remitting multiple sclerosis
     Route: 048
     Dates: start: 20160224
  3. GILENYA [Suspect]
     Active Substance: FINGOLIMOD HYDROCHLORIDE
     Indication: Multiple sclerosis
     Dosage: 2 MG, QD
     Route: 048
     Dates: end: 20171130
  4. OCREVUS [Concomitant]
     Active Substance: OCRELIZUMAB
     Indication: Multiple sclerosis
     Route: 042
     Dates: start: 20180614, end: 202204
  5. SOLU-MEDROL [Concomitant]
     Active Substance: METHYLPREDNISOLONE SODIUM SUCCINATE
     Indication: Muscle spasticity
     Dosage: 1 G, QD
     Route: 042
  6. DALFAMPRIDINE [Concomitant]
     Active Substance: DALFAMPRIDINE
     Indication: Product used for unknown indication
     Dosage: 10 MG, Q12H
     Route: 065
  7. VITAMIN D [Concomitant]
     Active Substance: VITAMIN D NOS
     Indication: Product used for unknown indication
     Dosage: 20000, QW
     Route: 065
  8. NORTRIPTYLINE [Concomitant]
     Active Substance: NORTRIPTYLINE
     Indication: Product used for unknown indication
     Route: 048
     Dates: start: 20231119
  9. BACLOFEN [Concomitant]
     Active Substance: BACLOFEN
     Indication: Product used for unknown indication
     Route: 048
  10. IBUPROFEN [Concomitant]
     Active Substance: IBUPROFEN
     Indication: Product used for unknown indication
     Dosage: 600 MG, Q6H
     Route: 065
  11. RANITIDINE [Concomitant]
     Active Substance: RANITIDINE
     Indication: Product used for unknown indication
     Dosage: 150 MG, BID
     Route: 048
  12. SENOKOT [Concomitant]
     Active Substance: SENNOSIDES
     Indication: Product used for unknown indication
     Dosage: 8.6 MG, BID
     Route: 065
  13. DOCUSATE SODIUM [Concomitant]
     Active Substance: DOCUSATE SODIUM
     Indication: Product used for unknown indication
     Dosage: 100-200 MG, BID
     Route: 048
  14. CLONIDINE [Concomitant]
     Active Substance: CLONIDINE
     Indication: Hot flush
     Dosage: 0.05 MG, BID
     Route: 048
  15. FLUCONAZOLE [Concomitant]
     Active Substance: FLUCONAZOLE
     Indication: Product used for unknown indication
     Dosage: 200 MG, Q4W
     Route: 048
  16. BUDESONIDE [Concomitant]
     Active Substance: BUDESONIDE
     Indication: Product used for unknown indication
     Route: 065
  17. SULFAMETHOXAZOLE\TRIMETHOPRIM [Concomitant]
     Active Substance: SULFAMETHOXAZOLE\TRIMETHOPRIM
     Indication: Product used for unknown indication
     Route: 065
  18. TOLTERODINE [Concomitant]
     Active Substance: TOLTERODINE
     Indication: Product used for unknown indication
     Route: 065
     Dates: start: 202209, end: 202301
  19. MIRABEGRON [Concomitant]
     Active Substance: MIRABEGRON
     Indication: Product used for unknown indication
     Route: 065
     Dates: start: 202201
  20. SOLIFENACIN [Concomitant]
     Active Substance: SOLIFENACIN
     Indication: Product used for unknown indication
     Dosage: 10 MG, QD
     Route: 065
     Dates: start: 20211210

REACTIONS (30)
  - Hepatitis [Unknown]
  - Multiple sclerosis relapse [Unknown]
  - Myelitis [Unknown]
  - Multiple sclerosis pseudo relapse [Unknown]
  - Immune reconstitution inflammatory syndrome [Unknown]
  - Palpitations [Unknown]
  - Stress [Unknown]
  - Confusional state [Unknown]
  - Disturbance in attention [Unknown]
  - Reading disorder [Unknown]
  - Lymphopenia [Unknown]
  - Gamma-glutamyltransferase increased [Unknown]
  - Alopecia [Unknown]
  - Seborrhoeic dermatitis [Unknown]
  - Paraesthesia [Unknown]
  - Burning sensation [Unknown]
  - Muscular weakness [Unknown]
  - Fatigue [Unknown]
  - Urinary incontinence [Unknown]
  - Balance disorder [Unknown]
  - Hypoaesthesia [Unknown]
  - Cognitive disorder [Unknown]
  - Polyuria [Unknown]
  - Pain [Not Recovered/Not Resolved]
  - Electric shock sensation [Unknown]
  - Urinary tract infection [Recovered/Resolved]
  - Sciatica [Unknown]
  - Musculoskeletal pain [Unknown]
  - COVID-19 [Unknown]
  - Spinal stenosis [Unknown]

NARRATIVE: CASE EVENT DATE: 20170701
